FAERS Safety Report 7183326-0 (Version None)
Quarter: 2010Q4

REPORT INFORMATION
  Report Type: 
  Country: None (occurrence: None)
  Receive Date: 20101222
  Receipt Date: 20100209
  Transmission Date: 20110411
  Serious: No
  Sender: FDA-Public Use
  Company Number: A0843760A

PATIENT
  Age: 25 Year
  Sex: Male

DRUGS (4)
  1. TRIZIVIR [Suspect]
     Indication: HIV INFECTION
     Route: 048
     Dates: start: 20000201
  2. CRYSTALLINE VIT B12 INJ [Concomitant]
  3. DEPO-TESTOSTERONE [Concomitant]
  4. OXANDRIN [Concomitant]

REACTIONS (1)
  - ABNORMAL LOSS OF WEIGHT [None]
